FAERS Safety Report 8900526 (Version 3)
Quarter: 2013Q1

REPORT INFORMATION
  Report Type: Spontaneous
  Country: CA (occurrence: CA)
  Receive Date: 20121109
  Receipt Date: 20130213
  Transmission Date: 20140127
  Serious: Yes (Hospitalization)
  Sender: FDA-Public Use
  Company Number: CA-ELI_LILLY_AND_COMPANY-CA201210009554

PATIENT
  Age: 73 Year
  Sex: Female

DRUGS (13)
  1. FORTEO [Suspect]
     Indication: OSTEOPOROSIS
     Dosage: 20 UG, QD
     Route: 058
     Dates: start: 20120417
  2. CALCIUM [Concomitant]
     Dosage: UNK
  3. VITAMIN D [Concomitant]
     Dosage: UNK
  4. INDERAL [Concomitant]
     Dosage: UNK
  5. LYRICA [Concomitant]
     Dosage: UNK
  6. ELAVIL [Concomitant]
  7. IRON SULFATE [Concomitant]
     Dosage: UNK
  8. PANTOLOC                           /01263204/ [Concomitant]
     Dosage: UNK
  9. DOCUSATE SODIUM [Concomitant]
     Dosage: UNK
  10. SENNOSIDES A+B [Concomitant]
     Dosage: UNK
  11. DILAUDID [Concomitant]
     Dosage: UNK
  12. CALTRATE [Concomitant]
  13. TYLENOL                                 /SCH/ [Concomitant]

REACTIONS (1)
  - No adverse event [Not Recovered/Not Resolved]
